FAERS Safety Report 20637873 (Version 3)
Quarter: 2022Q3

REPORT INFORMATION
  Report Type: Report from Study
  Country: CA (occurrence: CA)
  Receive Date: 20220325
  Receipt Date: 20220728
  Transmission Date: 20221027
  Serious: Yes (Hospitalization, Other)
  Sender: FDA-Public Use
  Company Number: CA-HLS-202200619

PATIENT
  Sex: Male

DRUGS (1)
  1. CLOZARIL [Suspect]
     Active Substance: CLOZAPINE
     Route: 048
     Dates: start: 20000821

REACTIONS (5)
  - Choking [Unknown]
  - Pneumonia [Unknown]
  - Neutrophil count decreased [Unknown]
  - Somnolence [Unknown]
  - Urinary tract infection [Unknown]
